FAERS Safety Report 6469264-7 (Version None)
Quarter: 2009Q4

REPORT INFORMATION
  Report Type: 
  Country: None (occurrence: None)
  Receive Date: 20091203
  Receipt Date: 20080425
  Transmission Date: 20100525
  Serious: Yes (Other)
  Sender: FDA-Public Use
  Company Number: FR-LLY01-FR200707003575

PATIENT
  Age: 55 Year
  Sex: Female

DRUGS (3)
  1. OPTRUMA [Suspect]
     Indication: OSTEOPOROSIS
     Dosage: 60 MG, DAILY (1/D)
     Route: 048
     Dates: start: 20070401, end: 20070703
  2. CACIT D3 [Concomitant]
     Indication: OSTEOPOROSIS
     Dosage: UNK, UNK
     Dates: start: 20070401
  3. TAHOR [Concomitant]
     Indication: BLOOD CHOLESTEROL ABNORMAL
     Dosage: 1 D/F, DAILY (1/D)
     Route: 048

REACTIONS (3)
  - BREAST DISCOMFORT [None]
  - HYPOTHYROIDISM [None]
  - WEIGHT INCREASED [None]
